FAERS Safety Report 24323784 (Version 3)
Quarter: 2025Q3

REPORT INFORMATION
  Report Type: Spontaneous
  Country: JP (occurrence: JP)
  Receive Date: 20240916
  Receipt Date: 20250803
  Transmission Date: 20251020
  Serious: Yes (Death, Other)
  Sender: ALEXION PHARMACEUTICALS
  Company Number: 2024A208678

PATIENT
  Age: 59 Year
  Sex: Male

DRUGS (2)
  1. ANDEXXA [Suspect]
     Active Substance: ANDEXANET ALFA
     Indication: Traumatic subarachnoid haemorrhage
  2. ANDEXXA [Suspect]
     Active Substance: ANDEXANET ALFA
     Indication: Brain contusion

REACTIONS (2)
  - Myocardial infarction [Fatal]
  - Haemorrhage [Unknown]
